FAERS Safety Report 16727624 (Version 2)
Quarter: 2019Q3

REPORT INFORMATION
  Report Type: Spontaneous
  Country: US (occurrence: US)
  Receive Date: 20190822
  Receipt Date: 20190910
  Transmission Date: 20191005
  Serious: Yes (Other)
  Sender: FDA-Public Use
  Company Number: US-BEH-2019105803

PATIENT
  Age: 40 Year
  Sex: Male

DRUGS (2)
  1. HUMAN IMMUNOGLOBULIN (INN) [Suspect]
     Active Substance: HUMAN IMMUNOGLOBULIN G
     Indication: CASTLEMAN^S DISEASE
     Route: 042
  2. RITUXIMAB. [Concomitant]
     Active Substance: RITUXIMAB
     Indication: CASTLEMAN^S DISEASE
     Route: 065

REACTIONS (5)
  - Subacute cutaneous lupus erythematosus [Recovered/Resolved]
  - No adverse event [Unknown]
  - Lichen planus [Recovered/Resolved]
  - Sunburn [Recovered/Resolved]
  - Product use in unapproved indication [Unknown]
